FAERS Safety Report 5681390-9 (Version None)
Quarter: 2008Q1

REPORT INFORMATION
  Report Type: 
  Country: None (occurrence: None)
  Receive Date: 20080326
  Receipt Date: 20070725
  Transmission Date: 20080703
  Serious: No
  Sender: FDA-Public Use
  Company Number: US-BAYER-US-2007-003352

PATIENT
  Age: 28 Year
  Sex: Female
  Weight: 87 kg

DRUGS (2)
  1. MIRENA [Suspect]
     Indication: CONTRACEPTION
     Route: 015
     Dates: start: 20060215, end: 20070210
  2. PAXIL [Concomitant]
     Route: 048

REACTIONS (1)
  - IUCD COMPLICATION [None]
